APPROVED DRUG PRODUCT: BACTERIOSTATIC SODIUM CHLORIDE 0.9% IN PLASTIC CONTAINER
Active Ingredient: SODIUM CHLORIDE
Strength: 180MG/20ML (9MG/ML)
Dosage Form/Route: SOLUTION;INJECTION
Application: N018800 | Product #002 | TE Code: AP
Applicant: HOSPIRA INC
Approved: Oct 29, 1982 | RLD: Yes | RS: Yes | Type: RX